FAERS Safety Report 22824437 (Version 2)
Quarter: 2023Q4

REPORT INFORMATION
  Report Type: Spontaneous
  Country: US (occurrence: None)
  Receive Date: 20230815
  Receipt Date: 20231102
  Transmission Date: 20240109
  Serious: No
  Sender: FDA-Public Use
  Company Number: 2023A185692

PATIENT

DRUGS (2)
  1. SYMBICORT [Suspect]
     Active Substance: BUDESONIDE\FORMOTEROL FUMARATE DIHYDRATE
     Indication: Asthma
     Dosage: 2 DOSAGES OF 160UG/4.5UG TWO TIMES A DAY
     Route: 055
  2. SYMBICORT [Suspect]
     Active Substance: BUDESONIDE\FORMOTEROL FUMARATE DIHYDRATE
     Indication: Interstitial lung disease
     Dosage: 2 DOSAGES OF 160UG/4.5UG TWO TIMES A DAY
     Route: 055

REACTIONS (6)
  - Lung disorder [Unknown]
  - Visual impairment [Unknown]
  - Dyspnoea [Unknown]
  - Device dispensing error [Unknown]
  - Device use issue [Unknown]
  - Device malfunction [Unknown]
